FAERS Safety Report 7751453-2 (Version None)
Quarter: 2011Q3

REPORT INFORMATION
  Report Type: 
  Country: None (occurrence: None)
  Receive Date: 20110914
  Receipt Date: 20110906
  Transmission Date: 20111222
  Serious: Yes (Hospitalization, Other)
  Sender: FDA-Public Use
  Company Number: PHEH2010US03433

PATIENT
  Sex: Male

DRUGS (3)
  1. ZOMETA [Suspect]
     Indication: METASTASES TO BONE
  2. ZOMETA [Suspect]
     Indication: MULTIPLE MYELOMA
     Dosage: 4 MG, QMO
  3. AREDIA [Suspect]
     Indication: OSTEOPOROSIS

REACTIONS (33)
  - OSTEONECROSIS OF JAW [None]
  - TENDERNESS [None]
  - EYE SWELLING [None]
  - GINGIVAL ERYTHEMA [None]
  - EXPOSED BONE IN JAW [None]
  - HYPERTENSION [None]
  - COMPRESSION FRACTURE [None]
  - INTERVERTEBRAL DISC PROTRUSION [None]
  - BRONCHITIS [None]
  - PAIN [None]
  - BONE PAIN [None]
  - APHASIA [None]
  - BACK PAIN [None]
  - INJURY [None]
  - ANXIETY [None]
  - OSTEOMYELITIS [None]
  - LEUKOPENIA [None]
  - COUGH [None]
  - HYPERGLYCAEMIA [None]
  - SWELLING FACE [None]
  - BLOOD URINE PRESENT [None]
  - ANAEMIA [None]
  - BLOOD CREATININE INCREASED [None]
  - SOMNOLENCE [None]
  - UPPER RESPIRATORY TRACT INFECTION [None]
  - ANHEDONIA [None]
  - THROMBOCYTOPENIA [None]
  - DYSPHAGIA [None]
  - SEXUAL DYSFUNCTION [None]
  - ENCEPHALITIS [None]
  - MUSCULOSKELETAL PAIN [None]
  - BONE LOSS [None]
  - INTERVERTEBRAL DISC DEGENERATION [None]
